FAERS Safety Report 26094748 (Version 1)
Quarter: 2025Q4

REPORT INFORMATION
  Report Type: Spontaneous
  Country: EU (occurrence: EU)
  Receive Date: 20251126
  Receipt Date: 20251126
  Transmission Date: 20260118
  Serious: Yes (Hospitalization)
  Sender: BIOGEN
  Company Number: EU-BIOGEN-2092542

PATIENT
  Age: 51 Year
  Sex: Female
  Weight: 92 kg

DRUGS (1)
  1. TYSABRI [Suspect]
     Active Substance: NATALIZUMAB
     Indication: Multiple sclerosis

REACTIONS (1)
  - Sciatica [Recovering/Resolving]

NARRATIVE: CASE EVENT DATE: 20251013
